FAERS Safety Report 13009864 (Version 3)
Quarter: 2017Q1

REPORT INFORMATION
  Report Type: Spontaneous
  Country: BR (occurrence: BR)
  Receive Date: 20161208
  Receipt Date: 20170206
  Transmission Date: 20170428
  Serious: Yes (Hospitalization, Other)
  Sender: FDA-Public Use
  Company Number: BR-JNJFOC-20161205088

PATIENT
  Sex: Male
  Weight: 68 kg

DRUGS (2)
  1. METHADONE [Concomitant]
     Active Substance: METHADONE HYDROCHLORIDE
     Indication: PRODUCT USED FOR UNKNOWN INDICATION
     Route: 065
  2. TYLEX [Suspect]
     Active Substance: ACETAMINOPHEN\CODEINE PHOSPHATE
     Indication: HERNIA PAIN
     Dosage: 8 BOX
     Route: 065

REACTIONS (6)
  - Pain [Unknown]
  - Cerebrovascular accident [Recovered/Resolved]
  - Tachycardia [Recovered/Resolved]
  - Product packaging issue [Unknown]
  - Cardiac disorder [Not Recovered/Not Resolved]
  - Carotid artery occlusion [Unknown]

NARRATIVE: CASE EVENT DATE: 2013
